FAERS Safety Report 9692357 (Version 2)
Quarter: 2013Q4

REPORT INFORMATION
  Report Type: Spontaneous
  Country: US (occurrence: US)
  Receive Date: 20131118
  Receipt Date: 20131203
  Transmission Date: 20140711
  Serious: No
  Sender: FDA-Public Use
  Company Number: US-PFIZER INC-2013326510

PATIENT
  Age: 57 Year
  Sex: Female
  Weight: 61.2 kg

DRUGS (4)
  1. CHANTIX [Suspect]
     Dosage: 0.5 MG, DAILY
     Route: 048
     Dates: start: 201211, end: 2012
  2. TRAZODONE [Concomitant]
     Indication: SLEEP DISORDER
     Dosage: 200 MG, DAILY AT BEDTIME
  3. HYDROCODONE W/ACETAMINOPHEN [Concomitant]
     Indication: BACK PAIN
     Dosage: HYDROCODONE BITARTRATE 10MG / ACETAMINOPHEN 325MG, 4X/DAY
  4. ACCOLATE [Concomitant]
     Indication: ASTHMA
     Dosage: 20 MG, 2X/DAY

REACTIONS (1)
  - Nausea [Recovered/Resolved]
